FAERS Safety Report 18222492 (Version 1)
Quarter: 2020Q3

REPORT INFORMATION
  Report Type: Spontaneous
  Country: US (occurrence: US)
  Receive Date: 20200902
  Receipt Date: 20200902
  Transmission Date: 20201103
  Serious: No
  Sender: FDA-Public Use
  Company Number: None

PATIENT
  Age: 57 Year
  Sex: Female
  Weight: 74.84 kg

DRUGS (20)
  1. DEXAMETHASONE. [Concomitant]
     Active Substance: DEXAMETHASONE
  2. LEXAPRO [Concomitant]
     Active Substance: ESCITALOPRAM OXALATE
  3. LEVOTHYROXINE SODIUM. [Concomitant]
     Active Substance: LEVOTHYROXINE SODIUM
  4. MORPHINE SULFATE ER BEADS [Concomitant]
  5. OXYCODONE HYDROCHLORIDE. [Concomitant]
     Active Substance: OXYCODONE HYDROCHLORIDE
  6. EMPAGLIFLOZIN [Concomitant]
     Active Substance: EMPAGLIFLOZIN
  7. SITAGLIPTIN [Concomitant]
     Active Substance: SITAGLIPTIN
  8. ESTRADIOL. [Concomitant]
     Active Substance: ESTRADIOL
  9. BUSPIRONE HCL [Concomitant]
     Active Substance: BUSPIRONE HYDROCHLORIDE
  10. TRAZODONE HYDROCHLORIDE. [Concomitant]
     Active Substance: TRAZODONE HYDROCHLORIDE
  11. TRESIBA [Concomitant]
     Active Substance: INSULIN DEGLUDEC
  12. METOPROLOL TARTRATE. [Concomitant]
     Active Substance: METOPROLOL TARTRATE
  13. BRAFTOVI [Suspect]
     Active Substance: ENCORAFENIB
     Indication: SKIN CANCER
     Route: 048
     Dates: start: 20200402, end: 20200902
  14. ROSUVASTATIN CALCIUM. [Concomitant]
     Active Substance: ROSUVASTATIN CALCIUM
  15. PANTOPRAZOLE SODIUM. [Concomitant]
     Active Substance: PANTOPRAZOLE SODIUM
  16. NYSTATIN. [Concomitant]
     Active Substance: NYSTATIN
  17. MEKTOVI [Suspect]
     Active Substance: BINIMETINIB
     Indication: SKIN CANCER
     Route: 048
     Dates: start: 20200402, end: 20200902
  18. DULOXETINE HCL [Concomitant]
     Active Substance: DULOXETINE HYDROCHLORIDE
  19. INSULIN ASPART FLEXPEN [Concomitant]
     Active Substance: INSULIN ASPART
  20. GLIPIZIDE. [Concomitant]
     Active Substance: GLIPIZIDE

REACTIONS (1)
  - Death [None]

NARRATIVE: CASE EVENT DATE: 20200902
